FAERS Safety Report 18120812 (Version 2)
Quarter: 2020Q4

REPORT INFORMATION
  Report Type: Spontaneous
  Country: ES (occurrence: ES)
  Receive Date: 20200806
  Receipt Date: 20201009
  Transmission Date: 20210113
  Serious: Yes (Other)
  Sender: FDA-Public Use
  Company Number: ES-TEVA-2020-ES-1217532

PATIENT
  Age: 54 Year
  Sex: Female

DRUGS (2)
  1. COPAXONE [Suspect]
     Active Substance: GLATIRAMER ACETATE
     Indication: MULTIPLE SCLEROSIS
     Route: 058
     Dates: start: 2019
  2. TRIPTIZOL [Concomitant]
     Active Substance: AMITRIPTYLINE HYDROCHLORIDE

REACTIONS (7)
  - Dysphonia [Recovering/Resolving]
  - Stress [Unknown]
  - Depression [Recovering/Resolving]
  - Crying [Recovered/Resolved]
  - Anxiety [Recovering/Resolving]
  - Muscle spasms [Unknown]
  - Depressed mood [Recovering/Resolving]

NARRATIVE: CASE EVENT DATE: 2019
